FAERS Safety Report 22902293 (Version 2)
Quarter: 2024Q1

REPORT INFORMATION
  Report Type: Report from Study
  Country: US (occurrence: US)
  Receive Date: 20230904
  Receipt Date: 20240104
  Transmission Date: 20240410
  Serious: Yes (Congenital Anomaly, Other)
  Sender: FDA-Public Use
  Company Number: US-UCBSA-2022064259

PATIENT
  Age: 2 Year
  Sex: Male
  Weight: 21.315 kg

DRUGS (11)
  1. FINTEPLA [Suspect]
     Active Substance: FENFLURAMINE
     Indication: Lennox-Gastaut syndrome
     Dosage: UNK
     Dates: start: 20201012
  2. FINTEPLA [Suspect]
     Active Substance: FENFLURAMINE
     Indication: Idiopathic generalised epilepsy
     Dosage: 0.7 MG/KG/DAY
     Dates: end: 20220307
  3. FINTEPLA [Suspect]
     Active Substance: FENFLURAMINE
     Indication: Off label use
     Dosage: 0.65 MG/KG/DAY
  4. FINTEPLA [Suspect]
     Active Substance: FENFLURAMINE
     Dosage: 0.37 MG/KG/DAY
  5. FINTEPLA [Suspect]
     Active Substance: FENFLURAMINE
     Dosage: 0.67 MG/KG/DAY
  6. FINTEPLA [Suspect]
     Active Substance: FENFLURAMINE
     Dosage: 0.69 MG/KG/DAY
  7. FINTEPLA [Suspect]
     Active Substance: FENFLURAMINE
     Dosage: 2.5 MILLILITER, 2X/DAY (BID)
  8. FINTEPLA [Suspect]
     Active Substance: FENFLURAMINE
     Dosage: 3.2 MILLILITER, 2X/DAY (BID)
  9. FINTEPLA [Suspect]
     Active Substance: FENFLURAMINE
     Dosage: 3.3 MILLILITER, 2X/DAY (BID)
  10. FINTEPLA [Suspect]
     Active Substance: FENFLURAMINE
     Dosage: 3.3 MILLILITER, 2X/DAY (BID)
  11. RAVICTI [Concomitant]
     Active Substance: GLYCEROL PHENYLBUTYRATE
     Indication: Product used for unknown indication
     Dosage: 1.4 MILLILITER, 3X/DAY (TID)
     Dates: start: 20231221, end: 20231221

REACTIONS (4)
  - Atrial septal defect [Unknown]
  - Viral infection [Recovered/Resolved]
  - Echocardiogram abnormal [Unknown]
  - Off label use [Unknown]

NARRATIVE: CASE EVENT DATE: 20201012
